FAERS Safety Report 6003756-X (Version None)
Quarter: 2008Q4

REPORT INFORMATION
  Report Type: 
  Country: None (occurrence: None)
  Receive Date: 20081216
  Receipt Date: 20081204
  Transmission Date: 20090506
  Serious: Yes (Other)
  Sender: FDA-Public Use
  Company Number: PHHY2008CA24735

PATIENT
  Sex: Male

DRUGS (3)
  1. EXJADE [Suspect]
     Indication: IRON OVERLOAD
     Dosage: 50 MG / KG
     Route: 048
     Dates: start: 20080905
  2. DESFERAL [Suspect]
     Indication: IRON OVERLOAD
     Dosage: 30 MG / KG
     Route: 058
     Dates: start: 20081010
  3. PENICILLIN [Concomitant]
     Indication: PROPHYLAXIS

REACTIONS (6)
  - ABDOMINAL PAIN [None]
  - BLOOD CREATININE INCREASED [None]
  - CONSTIPATION [None]
  - EJECTION FRACTION DECREASED [None]
  - NEUTROPHIL COUNT DECREASED [None]
  - NUCLEAR MAGNETIC RESONANCE IMAGING ABNORMAL [None]
